FAERS Safety Report 5753424-4 (Version None)
Quarter: 2008Q2

REPORT INFORMATION
  Report Type: 
  Country: None (occurrence: None)
  Receive Date: 20080530
  Receipt Date: 20080528
  Transmission Date: 20081010
  Serious: Yes (Life-Threatening, Hospitalization)
  Sender: FDA-Public Use
  Company Number: BR-ASTRAZENECA-2008UW10781

PATIENT
  Age: 75 Year
  Sex: Female
  Weight: 68 kg

DRUGS (9)
  1. SYMBICORT [Suspect]
     Indication: BRONCHITIS
     Dosage: 160/4.5 UG QD
     Route: 055
     Dates: start: 20050101, end: 20071101
  2. SYMBICORT [Suspect]
     Dosage: 320/9 UG QD
     Route: 055
     Dates: start: 20071101
  3. SYMBICORT [Suspect]
     Dosage: 320/9 UG TID WHEN BREATHLESSNESS WORSENING
     Route: 055
  4. BAMBEC [Suspect]
     Indication: BRONCHITIS
     Route: 048
     Dates: end: 20050101
  5. PAMELOR [Concomitant]
     Indication: DEPRESSION
     Route: 048
     Dates: start: 19880101
  6. CARBOLITHIUM [Concomitant]
     Indication: DEPRESSION
     Route: 048
     Dates: start: 19880101
  7. CARBAMAZEPINA [Concomitant]
     Indication: DEPRESSION
     Route: 048
     Dates: start: 19880101
  8. HYGROTON [Concomitant]
     Indication: DEPRESSION
     Route: 048
     Dates: start: 19880101
  9. SYNTHROID [Concomitant]
     Route: 048
     Dates: start: 19880101

REACTIONS (2)
  - BRONCHOSPASM [None]
  - DYSPNOEA [None]
